FAERS Safety Report 12331702 (Version 1)
Quarter: 2016Q2

REPORT INFORMATION
  Report Type: Spontaneous
  Country: US (occurrence: None)
  Receive Date: 20160503
  Receipt Date: 20160503
  Transmission Date: 20160815
  Serious: Yes (Other)
  Sender: FDA-Public Use
  Company Number: None

PATIENT
  Age: 48 Year
  Sex: Female
  Weight: 72.58 kg

DRUGS (4)
  1. ONE A DAY [Concomitant]
  2. LIOTHYRONINE GENERIC FOR CYTOMEL, 5 MG PERRIGO CO [Suspect]
     Active Substance: LIOTHYRONINE
     Indication: HYPOTHYROIDISM
     Dosage: IN THE MORNING TAKEN BY MOUTH
     Route: 048
     Dates: start: 20160406, end: 20160411
  3. VITAMIN B12 [Concomitant]
     Active Substance: CYANOCOBALAMIN
  4. CALCIUM [Concomitant]
     Active Substance: CALCIUM

REACTIONS (5)
  - Lethargy [None]
  - Heart rate decreased [None]
  - Somnolence [None]
  - Fatigue [None]
  - Cardiac disorder [None]

NARRATIVE: CASE EVENT DATE: 20160411
